FAERS Safety Report 8258842-0 (Version None)
Quarter: 2012Q2

REPORT INFORMATION
  Report Type: 
  Country: None (occurrence: None)
  Receive Date: 20120403
  Receipt Date: 20120403
  Transmission Date: 20120825
  Serious: Yes (Life-Threatening)
  Sender: FDA-Public Use
  Company Number: None

PATIENT
  Sex: Female
  Weight: 68.4932 kg

DRUGS (1)
  1. ADCIRCA [Suspect]
     Indication: PULMONARY ARTERIAL HYPERTENSION
     Dosage: 20 MG DAILY ORAL
     Route: 048
     Dates: start: 20120229

REACTIONS (4)
  - OEDEMA [None]
  - DYSPNOEA [None]
  - ERYTHEMA [None]
  - WEIGHT INCREASED [None]
